FAERS Safety Report 6408298-5 (Version None)
Quarter: 2009Q4

REPORT INFORMATION
  Report Type: 
  Country: None (occurrence: None)
  Receive Date: 20091021
  Receipt Date: 20091012
  Transmission Date: 20100525
  Serious: Yes (Hospitalization)
  Sender: FDA-Public Use
  Company Number: US-JNJFOC-20091004350

PATIENT
  Sex: Female
  Weight: 61.24 kg

DRUGS (5)
  1. DURAGESIC-100 [Suspect]
     Indication: HEADACHE
     Route: 062
     Dates: start: 20030101, end: 20091009
  2. DURAGESIC-100 [Suspect]
     Route: 062
     Dates: start: 20091009
  3. NEURONTIN [Concomitant]
     Indication: PAIN
     Route: 048
  4. DILANTIN [Concomitant]
     Indication: CONVULSION
     Route: 048
  5. KLONOPIN [Concomitant]
     Indication: CONVULSION
     Route: 048

REACTIONS (9)
  - BEDRIDDEN [None]
  - CACHEXIA [None]
  - EATING DISORDER [None]
  - HEAD INJURY [None]
  - MUSCULAR WEAKNESS [None]
  - NAUSEA [None]
  - PARKINSONISM [None]
  - PRODUCT QUALITY ISSUE [None]
  - WEIGHT DECREASED [None]
